FAERS Safety Report 9186362 (Version 1)
Quarter: 2013Q1

REPORT INFORMATION
  Report Type: Spontaneous
  Country: JP (occurrence: JP)
  Receive Date: 20130325
  Receipt Date: 20130325
  Transmission Date: 20140127
  Serious: Yes (Hospitalization)
  Sender: FDA-Public Use
  Company Number: PHHY2012JP121328

PATIENT
  Age: 75 Year
  Sex: Female

DRUGS (5)
  1. EQUA [Suspect]
     Indication: DIABETES MELLITUS
     Dosage: 1 DF, DAILY
     Route: 048
     Dates: start: 20100607, end: 20121101
  2. DIOVAN [Suspect]
     Dosage: UNK UKN, UNK
     Route: 048
  3. MEDET [Suspect]
     Indication: DIABETES MELLITUS
     Dosage: 1 DF, DAILY (750 MG)
     Route: 048
     Dates: end: 20121101
  4. GLIMICRON [Suspect]
     Indication: DIABETES MELLITUS
     Dosage: 1 DF, DAILY (GLIC 20 MG)
     Route: 048
     Dates: end: 20121101
  5. METHYCOBAL [Suspect]
     Dosage: UNK UKN, UNK

REACTIONS (4)
  - Pemphigoid [Not Recovered/Not Resolved]
  - Rash [Unknown]
  - Blister [Unknown]
  - Pruritus [Unknown]
